FAERS Safety Report 8942241 (Version 1)
Quarter: 2012Q4

REPORT INFORMATION
  Report Type: Spontaneous
  Country: US (occurrence: None)
  Receive Date: 20121129
  Receipt Date: 20121129
  Transmission Date: 20130627
  Serious: No
  Sender: FDA-Public Use
  Company Number: None

PATIENT
  Age: 65 Year
  Sex: Male
  Weight: 97.4 kg

DRUGS (1)
  1. TRAZODONE [Suspect]
     Indication: INSOMNIA
     Dosage: 100 MG  EVERY DAY PO
     Route: 048
     Dates: start: 20080129, end: 20110612

REACTIONS (1)
  - Pancytopenia [None]
